FAERS Safety Report 5174252-7 (Version None)
Quarter: 2006Q4

REPORT INFORMATION
  Report Type: 
  Country: None (occurrence: None)
  Receive Date: 20061206
  Receipt Date: 20061120
  Transmission Date: 20070319
  Serious: Yes (Hospitalization)
  Sender: FDA-Public Use
  Company Number: 2006002017

PATIENT
  Age: 70 Year
  Sex: Female
  Weight: 66.2 kg

DRUGS (9)
  1. ERLOTINIB (TABLET) [Suspect]
     Indication: NEOPLASM
     Dosage: 150 MG (QD), ORAL
     Route: 048
     Dates: start: 20061003, end: 20061019
  2. TOPOTECAN (TOPOTECAN) [Suspect]
     Indication: NEOPLASM
     Dosage: 1 MG/M2 (DAY 1-5), INTRAVENOUS
     Route: 042
     Dates: start: 20061002, end: 20061012
  3. SENOKOT [Concomitant]
  4. ATIVAN [Concomitant]
  5. TYLENOL [Concomitant]
  6. LEVAQUIN [Concomitant]
  7. MUCINEX (GAUIFENSESIN) [Concomitant]
  8. GUAIFENESIN (GUALIFENESIN) [Concomitant]
  9. DARBEPOETIN ALFA (DARBEPOETIN ALFA) [Concomitant]

REACTIONS (10)
  - ASCITES [None]
  - ASTHENIA [None]
  - COUGH [None]
  - DRUG TOXICITY [None]
  - FATIGUE [None]
  - FEBRILE NEUTROPENIA [None]
  - HAEMATOCRIT DECREASED [None]
  - PLATELET COUNT DECREASED [None]
  - VOMITING [None]
  - WHITE BLOOD CELL COUNT DECREASED [None]
